FAERS Safety Report 9643935 (Version 2)
Quarter: 2013Q4

REPORT INFORMATION
  Report Type: Spontaneous
  Country: CH (occurrence: None)
  Receive Date: 20131023
  Receipt Date: 20131212
  Transmission Date: 20140711
  Serious: Yes (Other)
  Sender: FDA-Public Use
  Company Number: 20130542

PATIENT
  Age: 28 Year
  Sex: Female

DRUGS (1)
  1. FERINJECT [Suspect]
     Indication: IRON DEFICIENCY ANAEMIA
     Dosage: OVER 30 MINUTES
     Route: 041
     Dates: start: 20130718, end: 20130718

REACTIONS (3)
  - Papule [None]
  - Pruritus [None]
  - Urticaria [None]
